FAERS Safety Report 8254413-0 (Version None)
Quarter: 2012Q2

REPORT INFORMATION
  Report Type: 
  Country: None (occurrence: None)
  Receive Date: 20120403
  Receipt Date: 20120323
  Transmission Date: 20120825
  Serious: Yes (Other)
  Sender: FDA-Public Use
  Company Number: US-BAXTER-2012BAX000903

PATIENT
  Age: 90 Year
  Sex: Male

DRUGS (12)
  1. HYDRALAZINE HCL [Concomitant]
  2. TRAMADOL HCL [Concomitant]
  3. PREDNISONE TAB [Concomitant]
  4. METOPROLOL TARTRATE [Concomitant]
  5. VANCOMYCIN [Concomitant]
  6. ASPIRIN [Concomitant]
  7. SIMVASTATIN [Concomitant]
  8. CEFTRIAXONE [Suspect]
  9. VANCOMYCIN [Concomitant]
     Route: 042
  10. PREDNISONE TAB [Concomitant]
  11. CEFTRIAXONE [Suspect]
     Route: 042
  12. LOSARTAN POTASSIUM [Concomitant]

REACTIONS (2)
  - AUTOIMMUNE HEPATITIS [None]
  - ACUTE HEPATIC FAILURE [None]
